FAERS Safety Report 18010395 (Version 1)
Quarter: 2020Q3

REPORT INFORMATION
  Report Type: Spontaneous
  Country: US (occurrence: US)
  Receive Date: 20200711
  Receipt Date: 20200711
  Transmission Date: 20201103
  Serious: No
  Sender: FDA-Public Use
  Company Number: NVSC2020US195593

PATIENT
  Age: 87 Year
  Sex: Female

DRUGS (1)
  1. VOLTAREN [Suspect]
     Active Substance: DICLOFENAC SODIUM
     Indication: PAIN IN EXTREMITY
     Dosage: UNK (FORMULATION: GEL)
     Route: 065
     Dates: start: 20200616, end: 20200629

REACTIONS (5)
  - Pain in extremity [Unknown]
  - Product use in unapproved indication [Unknown]
  - Product administered at inappropriate site [Unknown]
  - Condition aggravated [Unknown]
  - Skin reaction [Unknown]

NARRATIVE: CASE EVENT DATE: 20200630
